FAERS Safety Report 25430330 (Version 1)
Quarter: 2025Q2

REPORT INFORMATION
  Report Type: Spontaneous
  Country: US (occurrence: None)
  Receive Date: 20250612
  Receipt Date: 20250612
  Transmission Date: 20250716
  Serious: No
  Sender: FDA-CTU
  Company Number: None

PATIENT
  Age: 78 Year
  Sex: Female

DRUGS (9)
  1. MAVYRET [Suspect]
     Active Substance: GLECAPREVIR\PIBRENTASVIR
     Indication: Hepatitis C
     Dosage: 3 TOT - TOTAL DAILY ORAL
     Route: 048
     Dates: start: 20250516, end: 20250518
  2. ALPRAZOLAM [Concomitant]
     Active Substance: ALPRAZOLAM
     Dates: start: 20220921
  3. AMLODIPINE [Concomitant]
     Active Substance: AMLODIPINE BESYLATE
     Dates: start: 20220528
  4. COLCHICINE [Concomitant]
     Active Substance: COLCHICINE
     Dates: start: 20211130
  5. LOSARTAN [Concomitant]
     Active Substance: LOSARTAN
     Dates: start: 20220710
  6. metoprolol ER succinate 100mg [Concomitant]
     Dates: start: 20220303
  7. ofloxacin 0.3% opth sol [Concomitant]
     Dates: start: 20250513, end: 20250520
  8. olopatadine 0.1% opth sol [Concomitant]
     Dates: start: 20250513
  9. potassium cl 20meq [Concomitant]
     Dates: start: 20230522

REACTIONS (3)
  - Abdominal pain upper [None]
  - Muscular weakness [None]
  - Muscular weakness [None]

NARRATIVE: CASE EVENT DATE: 20250516
